FAERS Safety Report 21413550 (Version 1)
Quarter: 2022Q4

REPORT INFORMATION
  Report Type: Spontaneous
  Country: US (occurrence: None)
  Receive Date: 20221006
  Receipt Date: 20221006
  Transmission Date: 20230113
  Serious: No
  Sender: FDA-Public Use
  Company Number: 2022A314948

PATIENT
  Sex: Female
  Weight: 98.4 kg

DRUGS (3)
  1. FARXIGA [Suspect]
     Active Substance: DAPAGLIFLOZIN PROPANEDIOL
     Indication: Cardiac disorder
     Dosage: 10MG, ORALLY, ONCE A DAY
     Route: 048
     Dates: start: 2022
  2. FARXIGA [Suspect]
     Active Substance: DAPAGLIFLOZIN PROPANEDIOL
     Indication: Renal impairment
     Dosage: 10MG, ORALLY, ONCE A DAY
     Route: 048
     Dates: start: 2022
  3. FARXIGA [Suspect]
     Active Substance: DAPAGLIFLOZIN PROPANEDIOL
     Indication: Blood pressure management
     Dosage: 10MG, ORALLY, ONCE A DAY
     Route: 048
     Dates: start: 2022

REACTIONS (5)
  - Dizziness [Not Recovered/Not Resolved]
  - Constipation [Unknown]
  - Glucose tolerance impaired [Unknown]
  - Abnormal faeces [Not Recovered/Not Resolved]
  - Off label use [Unknown]
